FAERS Safety Report 13005455 (Version 2)
Quarter: 2016Q4

REPORT INFORMATION
  Report Type: Spontaneous
  Country: JP (occurrence: JP)
  Receive Date: 20161207
  Receipt Date: 20161223
  Transmission Date: 20170207
  Serious: Yes (Other)
  Sender: FDA-Public Use
  Company Number: JP-ELI_LILLY_AND_COMPANY-JP201612001105

PATIENT
  Age: 45 Year
  Sex: Male

DRUGS (3)
  1. ERBITUX [Suspect]
     Active Substance: CETUXIMAB
     Indication: TONGUE CANCER RECURRENT
     Dosage: UNK UNK, UNKNOWN
     Route: 065
     Dates: start: 201412
  2. CISPLATIN. [Concomitant]
     Active Substance: CISPLATIN
     Indication: TONGUE CANCER RECURRENT
     Dosage: UNK UNK, UNKNOWN
     Route: 065
     Dates: start: 201412
  3. FLUOROURACIL. [Concomitant]
     Active Substance: FLUOROURACIL
     Indication: TONGUE CANCER RECURRENT
     Dosage: UNK UNK, UNKNOWN
     Route: 065
     Dates: start: 201412

REACTIONS (2)
  - Tumour haemorrhage [Recovered/Resolved]
  - Drug ineffective [Unknown]

NARRATIVE: CASE EVENT DATE: 201508
